FAERS Safety Report 8917798 (Version 1)
Quarter: 2012Q4

REPORT INFORMATION
  Report Type: 
  Country: NZ (occurrence: NZ)
  Receive Date: 20121120
  Receipt Date: 20121120
  Transmission Date: 20130627
  Serious: Yes (Hospitalization)
  Sender: FDA-Public Use
  Company Number: NZ-MYLANLABS-2012S1023463

PATIENT
  Sex: Male

DRUGS (2)
  1. QUINAPRIL [Suspect]
     Indication: HYPERTENSION
     Route: 064
  2. NITROFURANTOIN [Concomitant]
     Indication: PROPHYLAXIS URINARY TRACT INFECTION
     Route: 064

REACTIONS (9)
  - Skull malformation [Not Recovered/Not Resolved]
  - Oligohydramnios [Recovered/Resolved]
  - Oligohydramnios [Recovered/Resolved]
  - Foetal growth restriction [Recovering/Resolving]
  - Pneumomediastinum [Recovered/Resolved]
  - Pneumothorax [Recovered/Resolved]
  - Renal dysplasia [Recovered/Resolved with Sequelae]
  - Exposure during pregnancy [Recovered/Resolved with Sequelae]
  - Hyponatraemia [Recovering/Resolving]
